FAERS Safety Report 20119123 (Version 2)
Quarter: 2021Q4

REPORT INFORMATION
  Report Type: Report from Study
  Country: HK (occurrence: None)
  Receive Date: 20211126
  Receipt Date: 20211213
  Transmission Date: 20220303
  Serious: Yes (Death)
  Sender: FDA-Public Use
  Company Number: HK-ROCHE-2963628

PATIENT
  Age: 62 Year
  Sex: Male
  Weight: 48.1 kg

DRUGS (15)
  1. TIRAGOLUMAB [Suspect]
     Active Substance: TIRAGOLUMAB
     Indication: Oesophageal squamous cell carcinoma metastatic
     Dosage: MOST RECENT DOSE (600 MG) OF STUDY DRUG PRIOR TO AE/SAE: 04-NOV-2021
     Route: 042
     Dates: start: 20211007
  2. ATEZOLIZUMAB [Suspect]
     Active Substance: ATEZOLIZUMAB
     Indication: Oesophageal squamous cell carcinoma metastatic
     Dosage: MOST RECENT DOSE OF STUDY DRUG PRIOR TO AE/SAE: 04-NOV-2021
     Route: 041
     Dates: start: 20211007
  3. PACLITAXEL [Suspect]
     Active Substance: PACLITAXEL
     Indication: Oesophageal squamous cell carcinoma metastatic
     Dosage: MOST RECENT DOSE OF PACLITAXEL 600 MG PRIOR TO AE/SAE: 04/NOV/2021
     Route: 042
     Dates: start: 20211007
  4. CISPLATIN [Suspect]
     Active Substance: CISPLATIN
     Indication: Oesophageal squamous cell carcinoma metastatic
     Dosage: MOST RECENT DOSE OF CISPLATIN 95 MG PRIOR TO AE/SAE: 04/NOV/2021
     Route: 042
     Dates: start: 20211007
  5. SENNA [Concomitant]
     Active Substance: SENNA LEAF\SENNOSIDES\SENNOSIDES A AND B
     Indication: Constipation
     Dosage: YES
     Dates: start: 20210914
  6. LACTULOSE [Concomitant]
     Active Substance: LACTULOSE
     Indication: Constipation
     Dosage: YES
     Dates: start: 20210914
  7. SODIUM CHLORIDE [Concomitant]
     Active Substance: SODIUM CHLORIDE
     Indication: Hyponatraemia
     Dosage: YES
     Dates: start: 20211005
  8. FAMOTIDINE [Concomitant]
     Active Substance: FAMOTIDINE
     Indication: Prophylaxis
     Dosage: GIVEN FOR PROPHYLAXIS IS YES ;ONGOING: NO
     Dates: start: 20211008, end: 20211029
  9. MORPHINE SULFATE [Concomitant]
     Active Substance: MORPHINE SULFATE
     Indication: Tumour pain
     Dosage: YES
     Dates: start: 20210914
  10. PANADOL [Concomitant]
     Active Substance: ACETAMINOPHEN
     Indication: Tumour pain
     Dosage: YES
     Dates: start: 20211008
  11. FENTANYL [Concomitant]
     Active Substance: FENTANYL
     Indication: Tumour pain
     Dosage: YES
     Dates: start: 20211015
  12. GABAPENTIN [Concomitant]
     Active Substance: GABAPENTIN
     Indication: Tumour pain
     Dosage: YES
     Dates: start: 20211030
  13. LANSOPRAZOLE [Concomitant]
     Active Substance: LANSOPRAZOLE
     Indication: Prophylaxis
     Dosage: GIVEN FOR PROPHYLAXIS IS YES ;ONGOING: YES
     Dates: start: 20211030
  14. METHADONE [Concomitant]
     Active Substance: METHADONE HYDROCHLORIDE
     Indication: Tumour pain
     Dosage: YES
     Dates: start: 20211030
  15. THYMOL GARGLE [Concomitant]
     Indication: Prophylaxis
     Dosage: GIVEN FOR PROPHYLAXIS IS YES ;ONGOING: YES
     Dates: start: 20211030

REACTIONS (1)
  - Death [Fatal]

NARRATIVE: CASE EVENT DATE: 20211121
